FAERS Safety Report 10611956 (Version 2)
Quarter: 2014Q4

REPORT INFORMATION
  Report Type: Spontaneous
  Country: DE (occurrence: DE)
  Receive Date: 20141126
  Receipt Date: 20141216
  Transmission Date: 20150529
  Serious: Yes (Life-Threatening, Hospitalization)
  Sender: FDA-Public Use
  Company Number: DE-OTSUKA-US-2014-14056

PATIENT

DRUGS (18)
  1. MONO EMBOLEX [Concomitant]
     Indication: THROMBOSIS PROPHYLAXIS
     Dosage: UNK, UNKNOWN, 3000 DOSE
     Route: 058
     Dates: start: 20140911
  2. METOPROLOL [Concomitant]
     Active Substance: METOPROLOL
     Indication: HYPERTENSION
     Dosage: 46.25 MG MILLIGRAM(S), UNKNOWN
     Route: 048
     Dates: start: 20140910
  3. ACICLOVIR [Concomitant]
     Active Substance: ACYCLOVIR
     Indication: HERPES ZOSTER
     Dosage: 800 MG MILLIGRAM(S), UNKNOWN
     Route: 048
     Dates: start: 20141020
  4. METOCLOPRAMIDE. [Concomitant]
     Active Substance: METOCLOPRAMIDE
     Indication: PROPHYLAXIS OF NAUSEA AND VOMITING
     Dosage: 10 MG MILLIGRAM(S), UNKNOWN
     Route: 042
     Dates: start: 20141115, end: 20141115
  5. FLUCONAZOLE. [Concomitant]
     Active Substance: FLUCONAZOLE
     Indication: PROPHYLAXIS
  6. BIFITERAL [Concomitant]
     Active Substance: LACTULOSE
     Indication: CONSTIPATION
     Dosage: 10 ML MILLILITRE(S), UNKNOWN
     Route: 048
     Dates: start: 20141116, end: 20141116
  7. FLUCONAZOLE. [Concomitant]
     Active Substance: FLUCONAZOLE
     Indication: FUNGAL INFECTION
     Dosage: 200 MG MILLIGRAM(S), 2 IN
     Route: 048
     Dates: start: 20140912
  8. ACICLOVIR [Concomitant]
     Active Substance: ACYCLOVIR
     Indication: PROPHYLAXIS
  9. COTRIMOXAZOL [Concomitant]
     Indication: PNEUMOCYSTIS JIROVECII INFECTION
     Dosage: 960 MG MILLIGRAM(S), 2 IN
     Route: 048
     Dates: start: 20141020
  10. RAMIPRIL. [Concomitant]
     Active Substance: RAMIPRIL
     Indication: HYPERTENSION
     Dosage: 5 MG MILLIGRAM(S), UNKNOWN
     Route: 048
     Dates: start: 20140919
  11. SIMVASTATIN. [Concomitant]
     Active Substance: SIMVASTATIN
     Indication: HYPERLIPIDAEMIA
     Dosage: 10 MG MILLIGRAM(S), UNKNOWN
     Route: 048
     Dates: start: 20140910
  12. CIPROFLOXACIN. [Concomitant]
     Active Substance: CIPROFLOXACIN
     Indication: INFECTION PROPHYLAXIS
     Dosage: 500 MG MILLIGRAM(S), 1 IN
     Route: 048
     Dates: start: 20140912
  13. COTRIMOXAZOL [Concomitant]
     Indication: PROPHYLAXIS
  14. GRANISETRON [Concomitant]
     Active Substance: GRANISETRON
     Indication: PROPHYLAXIS OF NAUSEA AND VOMITING
     Dosage: 3 MG MILLIGRAM(S), UNKNOWN
     Route: 042
     Dates: start: 20141113, end: 20141117
  15. JONOSTERIL [Concomitant]
     Active Substance: UNSPECIFIED INGREDIENT
     Indication: PROPHYLAXIS
     Dosage: 500 ML MILLILITRE(S), UNKNOWN
     Route: 042
     Dates: start: 20141113, end: 20141117
  16. DACOGEN [Suspect]
     Active Substance: DECITABINE
     Indication: ACUTE MYELOID LEUKAEMIA
     Dosage: 38 MG MILLIGRAM(S), DAILY DOSE
     Route: 042
     Dates: start: 20141016, end: 20141020
  17. PANTOPRAZOLE [Concomitant]
     Active Substance: PANTOPRAZOLE SODIUM
     Indication: PRODUCT USED FOR UNKNOWN INDICATION
     Dosage: 20 MG MILLIGRAM(S), UNKNOWN
     Route: 048
     Dates: start: 20141020
  18. DACOGEN [Suspect]
     Active Substance: DECITABINE
     Dosage: 37 MG MILLIGRAM(S), UNKNOWN, IN 1 DAY
     Route: 042
     Dates: start: 20141113, end: 20141117

REACTIONS (4)
  - Haemorrhagic anaemia [Not Recovered/Not Resolved]
  - Haematemesis [Not Recovered/Not Resolved]
  - Febrile neutropenia [Recovered/Resolved]
  - Melaena [Not Recovered/Not Resolved]

NARRATIVE: CASE EVENT DATE: 20141102
